FAERS Safety Report 9153807 (Version 1)
Quarter: 2013Q1

REPORT INFORMATION
  Report Type: Spontaneous
  Country: US (occurrence: None)
  Receive Date: 20130219
  Receipt Date: 20130219
  Transmission Date: 20140127
  Serious: Yes (Other)
  Sender: FDA-Public Use
  Company Number: TPA2012A11090

PATIENT
  Age: 71 Year
  Sex: Male
  Weight: 77.11 kg

DRUGS (2)
  1. ACTOS(PIOGLITAZONE HYDROCHLORIDE) [Suspect]
     Indication: TYPE 2 DIABETES MELLITUS
     Dates: start: 20101214, end: 20110817
  2. METFORMIN (METFORMIN) [Concomitant]

REACTIONS (1)
  - Bladder cancer [None]
